FAERS Safety Report 6703934-8 (Version None)
Quarter: 2010Q2

REPORT INFORMATION
  Report Type: 
  Country: None (occurrence: None)
  Receive Date: 20100430
  Receipt Date: 20100421
  Transmission Date: 20101027
  Serious: Yes (Other)
  Sender: FDA-Public Use
  Company Number: US-PFIZER INC-2010054209

PATIENT

DRUGS (1)
  1. GEODON [Suspect]

REACTIONS (2)
  - DRUG ADMINISTRATION ERROR [None]
  - GASTROSTOMY TUBE INSERTION [None]
